FAERS Safety Report 5753637-1 (Version None)
Quarter: 2008Q2

REPORT INFORMATION
  Report Type: 
  Country: None (occurrence: None)
  Receive Date: 20080527
  Receipt Date: 20080527
  Transmission Date: 20081010
  Serious: Yes (Other)
  Sender: FDA-Public Use
  Company Number: None

PATIENT
  Sex: Female
  Weight: 54.4316 kg

DRUGS (2)
  1. SINGULAIR [Suspect]
     Indication: ASTHMA
     Dosage: 10 MG 1/DAY PO
     Route: 048
     Dates: start: 20061125, end: 20080513
  2. SINGULAIR [Suspect]
     Indication: RHINITIS ALLERGIC
     Dosage: 10 MG 1/DAY PO
     Route: 048
     Dates: start: 20061125, end: 20080513

REACTIONS (8)
  - ANXIETY [None]
  - ASTHENIA [None]
  - DECREASED ACTIVITY [None]
  - DEPRESSION [None]
  - DISTURBANCE IN ATTENTION [None]
  - IRRITABILITY [None]
  - NIGHTMARE [None]
  - SUICIDAL IDEATION [None]
